FAERS Safety Report 6182136-0 (Version None)
Quarter: 2009Q2

REPORT INFORMATION
  Report Type: 
  Country: None (occurrence: None)
  Receive Date: 20090507
  Receipt Date: 20090430
  Transmission Date: 20091009
  Serious: Yes (Hospitalization)
  Sender: FDA-Public Use
  Company Number: US-JNJFOC-20090500863

PATIENT
  Sex: Female
  Weight: 30.84 kg

DRUGS (5)
  1. FENTANYL TRANSDERMAL SYSTEM [Suspect]
     Indication: CANCER PAIN
     Route: 062
  2. CARAFATE [Concomitant]
     Indication: ULCER
     Route: 048
  3. ESOMEPRAZOLE [Concomitant]
     Indication: OESOPHAGEAL DISORDER
     Route: 048
  4. ESOMEPRAZOLE [Concomitant]
     Indication: GASTRIC DISORDER
     Route: 048
  5. XANAX [Concomitant]
     Indication: STRESS
     Route: 048

REACTIONS (3)
  - DEHYDRATION [None]
  - PAIN [None]
  - WRONG TECHNIQUE IN DRUG USAGE PROCESS [None]
